FAERS Safety Report 5721590-2 (Version None)
Quarter: 2008Q2

REPORT INFORMATION
  Report Type: 
  Country: None (occurrence: None)
  Receive Date: 20080429
  Receipt Date: 20070309
  Transmission Date: 20081010
  Serious: No
  Sender: FDA-Public Use
  Company Number: US-ASTRAZENECA-2007UW04664

PATIENT
  Age: 63 Year
  Sex: Female
  Weight: 56.2 kg

DRUGS (6)
  1. NEXIUM [Suspect]
     Indication: OESOPHAGEAL DISORDER
     Route: 048
     Dates: start: 20070308
  2. LEVAQUIN [Concomitant]
     Indication: EAR DISCOMFORT
     Dates: start: 20070308
  3. LEVAQUIN [Concomitant]
     Indication: LYMPHADENOPATHY
     Dates: start: 20070308
  4. VICODIN [Concomitant]
  5. PREMPRO [Concomitant]
  6. LEVOXYL [Concomitant]
     Indication: THYROID DISORDER

REACTIONS (1)
  - CHEST DISCOMFORT [None]
